FAERS Safety Report 7883357-9 (Version None)
Quarter: 2011Q4

REPORT INFORMATION
  Report Type: 
  Country: None (occurrence: None)
  Receive Date: 20111102
  Receipt Date: 20111102
  Transmission Date: 20120403
  Serious: Yes (Hospitalization, Other)
  Sender: FDA-Public Use
  Company Number: None

PATIENT
  Sex: Female

DRUGS (6)
  1. IODINE IN IV [Concomitant]
  2. SOLU-MEDROL [Concomitant]
  3. ASPIRIN [Concomitant]
  4. VERSED [Suspect]
  5. FENTANYL [Concomitant]
  6. TAGAMET [Concomitant]

REACTIONS (8)
  - CEREBROVASCULAR ACCIDENT [None]
  - CONTRAST MEDIA ALLERGY [None]
  - DIZZINESS [None]
  - THROAT TIGHTNESS [None]
  - HEADACHE [None]
  - LIP DISORDER [None]
  - HYPOAESTHESIA [None]
  - DOCUMENTED HYPERSENSITIVITY TO ADMINISTERED DRUG [None]
